FAERS Safety Report 4840793-2 (Version None)
Quarter: 2005Q4

REPORT INFORMATION
  Report Type: 
  Country: None (occurrence: None)
  Receive Date: 20051130
  Receipt Date: 20041115
  Transmission Date: 20060501
  Serious: No
  Sender: FDA-Public Use
  Company Number: US-BRISTOL-MYERS SQUIBB COMPANY-12765681

PATIENT
  Age: 74 Year
  Sex: Female
  Weight: 91 kg

DRUGS (7)
  1. AVALIDE [Suspect]
     Indication: HYPERTENSION
     Dosage: BEGAN AVALIDE ABOUT 1 YEAR AGO
     Route: 048
  2. HYDROCHLOROTHIAZIDE [Concomitant]
  3. TOPROL-XL [Concomitant]
  4. COUMADIN [Concomitant]
  5. XANAX [Concomitant]
  6. LIPITOR [Concomitant]
  7. ZETIA [Concomitant]

REACTIONS (1)
  - FATIGUE [None]
